FAERS Safety Report 6250676-1 (Version None)
Quarter: 2009Q2

REPORT INFORMATION
  Report Type: 
  Country: None (occurrence: None)
  Receive Date: 20090626
  Receipt Date: 20090615
  Transmission Date: 20091009
  Serious: Yes (Death, Other)
  Sender: FDA-Public Use
  Company Number: 2009-01473

PATIENT
  Age: 60 Year
  Sex: Male

DRUGS (4)
  1. VELCADE [Suspect]
     Indication: PLASMACYTOMA
     Dosage: 1.3 MG/M2, INTRAVENOUS
     Route: 042
     Dates: start: 20090316, end: 20090330
  2. LONALGAL      (CODEINE PHOSPHATE, PARACETAMOL) [Concomitant]
  3. MORPHINE [Concomitant]
  4. DEXAMETHASONE [Concomitant]

REACTIONS (2)
  - CHOLESTASIS [None]
  - HEPATIC CIRRHOSIS [None]
